FAERS Safety Report 23791273 (Version 1)
Quarter: 2024Q2

REPORT INFORMATION
  Report Type: Spontaneous
  Country: CN (occurrence: CN)
  Receive Date: 20240428
  Receipt Date: 20240428
  Transmission Date: 20240716
  Serious: Yes (Other)
  Sender: FDA-Public Use
  Company Number: CN-002147023-NVSC2024CN083561

PATIENT
  Age: 31 Year
  Sex: Female

DRUGS (1)
  1. TOBRADEX [Suspect]
     Active Substance: DEXAMETHASONE\TOBRAMYCIN
     Indication: Iridocyclitis
     Dosage: UNK UNK, QID
     Route: 047
     Dates: start: 20230728

REACTIONS (1)
  - Ocular hypertension [Recovering/Resolving]
